FAERS Safety Report 9753837 (Version 2)
Quarter: 2013Q4

REPORT INFORMATION
  Report Type: Spontaneous
  Country: US (occurrence: US)
  Receive Date: 20131213
  Receipt Date: 20131213
  Transmission Date: 20140711
  Serious: No
  Sender: FDA-Public Use
  Company Number: US-GILEAD-2010-0027510

PATIENT
  Age: 75 Year
  Sex: Female

DRUGS (7)
  1. LETAIRIS [Suspect]
     Indication: PULMONARY ARTERIAL HYPERTENSION
     Route: 048
     Dates: start: 20080103, end: 20100121
  2. VENTAVIS [Concomitant]
  3. CRESTOR [Concomitant]
  4. WARFARIN [Concomitant]
  5. ALENDRONATE [Concomitant]
  6. ASPIRIN [Concomitant]
  7. MECLIZINE [Concomitant]

REACTIONS (1)
  - Palpitations [Recovered/Resolved]
